FAERS Safety Report 10022928 (Version 1)
Quarter: 2014Q1

REPORT INFORMATION
  Report Type: Spontaneous
  Country: US (occurrence: US)
  Receive Date: 20140319
  Receipt Date: 20140319
  Transmission Date: 20141002
  Serious: No
  Sender: FDA-Public Use
  Company Number: US-SA-2013SA108457

PATIENT
  Age: 63 Year
  Sex: Female

DRUGS (1)
  1. TRIAMCINOLONE ACETONIDE - WINTHROP [Suspect]
     Indication: NASAL CONGESTION
     Dosage: 2 IN EACH
     Route: 045
     Dates: start: 20131018

REACTIONS (3)
  - Throat irritation [Not Recovered/Not Resolved]
  - Malaise [Not Recovered/Not Resolved]
  - Nasal discomfort [Not Recovered/Not Resolved]
